FAERS Safety Report 5978817-1 (Version None)
Quarter: 2008Q4

REPORT INFORMATION
  Report Type: 
  Country: None (occurrence: None)
  Receive Date: 20081204
  Receipt Date: 20081125
  Transmission Date: 20090506
  Serious: Yes (Other)
  Sender: FDA-Public Use
  Company Number: PHHY2008AU26597

PATIENT
  Sex: Male

DRUGS (2)
  1. CLOZARIL [Suspect]
     Indication: SCHIZOPHRENIA
     Dosage: 600 MG NOCTE
     Dates: start: 20000101
  2. VENLAFAXINE HCL [Suspect]
     Dosage: 225 MG MANE

REACTIONS (5)
  - BUNDLE BRANCH BLOCK RIGHT [None]
  - LEFT ATRIAL DILATATION [None]
  - SINUS TACHYCARDIA [None]
  - VENTRICULAR HYPOKINESIA [None]
  - VENTRICULAR SEPTAL DEFECT ACQUIRED [None]
